FAERS Safety Report 5646684-1 (Version None)
Quarter: 2008Q1

REPORT INFORMATION
  Report Type: 
  Country: None (occurrence: None)
  Receive Date: 20080131
  Receipt Date: 20071107
  Transmission Date: 20080703
  Serious: Yes (Other)
  Sender: FDA-Public Use
  Company Number: 163-21880-07110548

PATIENT
  Age: 46 Year
  Sex: Male

DRUGS (3)
  1. REVLIMID [Suspect]
     Indication: MULTIPLE MYELOMA
     Dosage: 10 MG, DAILY X 28/28 DAYS, ORAL, 10 MG, DAILY X 28/28 DAYS, ORAL
     Route: 048
     Dates: start: 20070126, end: 20071010
  2. REVLIMID [Suspect]
     Indication: MULTIPLE MYELOMA
     Dosage: 10 MG, DAILY X 28/28 DAYS, ORAL, 10 MG, DAILY X 28/28 DAYS, ORAL
     Route: 048
     Dates: start: 20071015
  3. VELCADE [Concomitant]

REACTIONS (1)
  - PLATELET COUNT DECREASED [None]
